FAERS Safety Report 25222067 (Version 3)
Quarter: 2025Q2

REPORT INFORMATION
  Report Type: Report from Study
  Country: KR (occurrence: KR)
  Receive Date: 20250421
  Receipt Date: 20250507
  Transmission Date: 20250716
  Serious: Yes (Other)
  Sender: PFIZER
  Company Number: KR-PFIZER INC-PV202500047143

PATIENT
  Age: 13 Month
  Sex: Female
  Weight: 12.1 kg

DRUGS (8)
  1. LORLATINIB [Suspect]
     Active Substance: LORLATINIB
     Indication: Non-small cell lung cancer
     Dosage: 50 MG (25 MG, 2 TABLET), 1X/DAY
     Route: 048
     Dates: start: 20211118, end: 20240819
  2. TRILEPTAL [Concomitant]
     Active Substance: OXCARBAZEPINE
     Indication: Seizure prophylaxis
     Dosage: 2 ML, 2X/DAY, 6% [60 MG], SOLUTION
     Route: 048
     Dates: start: 20220111, end: 20220222
  3. TRILEPTAL [Concomitant]
     Active Substance: OXCARBAZEPINE
     Dosage: 2.5 ML, 2X/DAY, 6% [60 MG], SOLUTION
     Route: 048
     Dates: start: 20220223, end: 20220404
  4. TRILEPTAL [Concomitant]
     Active Substance: OXCARBAZEPINE
     Dosage: 3 ML, 2X/DAY, 6% [60 MG], SOLUTION
     Route: 048
     Dates: start: 20220405
  5. KEPPRA [Concomitant]
     Active Substance: LEVETIRACETAM
     Indication: Seizure prophylaxis
     Dosage: 1 ML, 2X/DAY, SOLUTION [100 MG]
     Route: 048
     Dates: start: 20211123, end: 20211129
  6. KEPPRA [Concomitant]
     Active Substance: LEVETIRACETAM
     Dosage: 2 ML, 2X/DAY, SOLUTION [100 MG]
     Route: 048
     Dates: start: 20211130, end: 20240409
  7. KEPPRA [Concomitant]
     Active Substance: LEVETIRACETAM
     Dosage: 1.5 ML, 2X/DAY, SOLUTION [100 MG]
     Route: 048
     Dates: start: 20240409, end: 20240712
  8. KEPPRA [Concomitant]
     Active Substance: LEVETIRACETAM
     Dosage: 1 ML, 2X/DAY, SOLUTION [100 MG]
     Route: 048
     Dates: start: 20240713

REACTIONS (1)
  - Dyslipidaemia [Not Recovered/Not Resolved]

NARRATIVE: CASE EVENT DATE: 20220223
